FAERS Safety Report 6104624-5 (Version None)
Quarter: 2009Q1

REPORT INFORMATION
  Report Type: 
  Country: None (occurrence: None)
  Receive Date: 20090304
  Receipt Date: 20090227
  Transmission Date: 20090719
  Serious: Yes (Other)
  Sender: FDA-Public Use
  Company Number: APP200900105

PATIENT
  Age: 66 Year
  Sex: Male
  Weight: 85 kg

DRUGS (9)
  1. HEPARIN SODIUM INJECTION [Suspect]
     Indication: ANTICOAGULANT THERAPY
     Dosage: SEE IMAGE
     Route: 042
     Dates: start: 20090219, end: 20090219
  2. HEPARIN SODIUM INJECTION [Suspect]
     Indication: CORONARY ARTERY BYPASS
     Dosage: SEE IMAGE
     Route: 042
     Dates: start: 20090219, end: 20090219
  3. HEPARIN SODIUM INJECTION [Suspect]
     Indication: ANTICOAGULANT THERAPY
     Dosage: SEE IMAGE
     Route: 042
     Dates: start: 20090219, end: 20090219
  4. HEPARIN SODIUM INJECTION [Suspect]
     Indication: CORONARY ARTERY BYPASS
     Dosage: SEE IMAGE
     Route: 042
     Dates: start: 20090219, end: 20090219
  5. HEPARIN SODIUM INJECTION [Suspect]
     Indication: ANTICOAGULANT THERAPY
     Dosage: SEE IMAGE
     Route: 042
     Dates: start: 20090219, end: 20090219
  6. HEPARIN SODIUM INJECTION [Suspect]
     Indication: CORONARY ARTERY BYPASS
     Dosage: SEE IMAGE
     Route: 042
     Dates: start: 20090219, end: 20090219
  7. HEPARIN SODIUM INJECTION [Suspect]
     Indication: ANTICOAGULANT THERAPY
     Dosage: SEE IMAGE
     Route: 042
     Dates: start: 20090219, end: 20090219
  8. HEPARIN SODIUM INJECTION [Suspect]
     Indication: CORONARY ARTERY BYPASS
     Dosage: SEE IMAGE
     Route: 042
     Dates: start: 20090219, end: 20090219
  9. HEPARIN SODIUM INJECTION [Suspect]

REACTIONS (2)
  - COAGULATION TIME PROLONGED [None]
  - DRUG INEFFECTIVE [None]
